FAERS Safety Report 16404299 (Version 1)
Quarter: 2019Q2

REPORT INFORMATION
  Report Type: Spontaneous
  Country: US (occurrence: US)
  Receive Date: 20190607
  Receipt Date: 20190607
  Transmission Date: 20190711
  Serious: No
  Sender: FDA-Public Use
  Company Number: US-PFIZER INC-2019237107

PATIENT
  Age: 84 Year
  Sex: Female
  Weight: 62 kg

DRUGS (9)
  1. XGEVA [Concomitant]
     Active Substance: DENOSUMAB
     Indication: BONE DENSITY ABNORMAL
     Dosage: UNK (SHOTS, EVERY 3-4 MONTHS)
     Dates: start: 2019
  2. ALEVE [Concomitant]
     Active Substance: NAPROXEN SODIUM
     Indication: HEADACHE
     Dosage: UNK (BUT DOES NOT TAKE IT DAILY)
  3. PERCOCET [Concomitant]
     Active Substance: ACETAMINOPHEN\OXYCODONE HYDROCHLORIDE
     Indication: METASTASES TO BONE
  4. PRESERVISION SOFTGELS WITH LUTEIN [Concomitant]
     Indication: EYE DISORDER
     Dosage: 1 DF, 1X/DAY
  5. IBRANCE [Suspect]
     Active Substance: PALBOCICLIB
     Indication: BREAST CANCER FEMALE
     Dosage: 125 MG, 1X/DAY (ONCE A DAY BY MOUTH IN THE MORNING)
     Route: 048
     Dates: start: 20190513, end: 20190530
  6. FASLODEX [Concomitant]
     Active Substance: FULVESTRANT
     Indication: METASTASIS
     Dosage: UNK (SHOTS, A YEAR AGO )
  7. CITRICAL [CALCIUM] [Concomitant]
     Indication: BLOOD CALCIUM DECREASED
     Dosage: 2 DF, 1X/DAY (2 PILLS PER MORNING)
  8. PERCOCET [Concomitant]
     Active Substance: ACETAMINOPHEN\OXYCODONE HYDROCHLORIDE
     Indication: PAIN
     Dosage: 1 DF, AS NEEDED (TAKES 1 PILL IN MORNING AND 1 IN EVENING AND AS NEEDED DURING DAY EVERY 4-6 HOURS)
  9. ONE-A-DAY [ASCORBIC ACID;CYANOCOBALAMIN;ERGOCALCIFEROL;NICOTINAMIDE;PY [Concomitant]
     Indication: VITAMIN SUPPLEMENTATION
     Dosage: 1 DF, 1X/DAY

REACTIONS (3)
  - Off label use [Unknown]
  - White blood cell count decreased [Not Recovered/Not Resolved]
  - Platelet count decreased [Unknown]

NARRATIVE: CASE EVENT DATE: 20190528
